FAERS Safety Report 9039344 (Version 1)
Quarter: 2013Q1

REPORT INFORMATION
  Report Type: Spontaneous
  Country: US (occurrence: None)
  Receive Date: 20130123
  Receipt Date: 20130123
  Transmission Date: 20140127
  Serious: No
  Sender: FDA-Public Use
  Company Number: None

PATIENT
  Age: 41 Year
  Sex: Female

DRUGS (4)
  1. COPAXONE [Suspect]
     Indication: MULTIPLE SCLEROSIS
     Route: 058
     Dates: start: 20120108, end: 20130122
  2. CALCIUM [Concomitant]
  3. VITAMIN D [Concomitant]
  4. CLARITIN [Concomitant]

REACTIONS (2)
  - Injection site bruising [None]
  - Injection site pruritus [None]
